FAERS Safety Report 10157902 (Version 1)
Quarter: 2014Q2

REPORT INFORMATION
  Report Type: Spontaneous
  Country: US (occurrence: US)
  Receive Date: 20140507
  Receipt Date: 20140507
  Transmission Date: 20141212
  Serious: Yes (Hospitalization, Other)
  Sender: FDA-Public Use
  Company Number: US-ELI_LILLY_AND_COMPANY-US201405000097

PATIENT
  Age: 62 Year
  Sex: Female

DRUGS (5)
  1. EFFIENT [Suspect]
     Indication: ACUTE MYOCARDIAL INFARCTION
     Dosage: 60 MG, SINGLE
     Route: 048
     Dates: start: 20140312
  2. INTEGRILIN [Concomitant]
     Route: 040
  3. ANGIOMAX [Concomitant]
     Route: 040
  4. HEPARIN [Concomitant]
     Dosage: 5000 U, UNKNOWN
  5. ASPIRIN [Concomitant]

REACTIONS (1)
  - Thrombosis in device [Recovered/Resolved]
